FAERS Safety Report 6568073-8 (Version None)
Quarter: 2010Q1

REPORT INFORMATION
  Report Type: 
  Country: None (occurrence: None)
  Receive Date: 20100203
  Receipt Date: 20100129
  Transmission Date: 20100710
  Serious: Yes (Hospitalization, Other)
  Sender: FDA-Public Use
  Company Number: JP-ROXANE LABORATORIES, INC.-2010-RO-00116RO

PATIENT
  Age: 19 Year
  Sex: Male
  Weight: 46 kg

DRUGS (13)
  1. LIDOCAINE [Suspect]
     Indication: LOCAL ANAESTHESIA
  2. DIAZEPAM [Suspect]
     Indication: ENDOTRACHEAL INTUBATION
  3. HEPARIN [Suspect]
     Route: 042
  4. HEPARIN [Suspect]
     Route: 042
  5. HEPARIN [Suspect]
     Route: 042
  6. HYDROCORTISONE [Suspect]
     Indication: ANAPHYLACTIC SHOCK
     Route: 042
  7. VECURONIUM BROMIDE [Suspect]
     Indication: ENDOTRACHEAL INTUBATION
  8. DOPAMINE HCL [Suspect]
     Indication: HYPOTENSION
  9. NORADRENALIN [Suspect]
     Indication: HYPOTENSION
  10. ADRENALIN [Suspect]
     Indication: HYPOTENSION
  11. METHYLPREDNISOLONE [Suspect]
     Indication: ANAPHYLACTIC SHOCK
     Route: 042
  12. AMPICILLIN [Suspect]
  13. BETAMETHASONE [Concomitant]
     Indication: ANOSMIA
     Route: 045

REACTIONS (5)
  - ANAPHYLACTIC SHOCK [None]
  - ANOSMIA [None]
  - DRUG INEFFECTIVE [None]
  - LARYNGEAL OEDEMA [None]
  - LIP OEDEMA [None]
